FAERS Safety Report 4925706-7 (Version None)
Quarter: 2006Q1

REPORT INFORMATION
  Report Type: 
  Country: None (occurrence: None)
  Receive Date: 20060228
  Receipt Date: 20050125
  Transmission Date: 20060701
  Serious: Yes (Disabling)
  Sender: FDA-Public Use
  Company Number: US-GLAXOSMITHKLINE-A0542485A

PATIENT
  Age: 50 Year
  Sex: Female

DRUGS (5)
  1. LAMICTAL [Suspect]
     Route: 048
     Dates: start: 20040720, end: 20041225
  2. LITHIUM [Concomitant]
     Route: 065
  3. SEROQUEL [Concomitant]
     Route: 065
  4. RISPERDAL [Concomitant]
     Route: 065
  5. AMBIEN [Concomitant]
     Route: 048

REACTIONS (1)
  - COORDINATION ABNORMAL [None]
